FAERS Safety Report 6313257-7 (Version None)
Quarter: 2009Q3

REPORT INFORMATION
  Report Type: 
  Country: None (occurrence: None)
  Receive Date: 20090814
  Receipt Date: 20090814
  Transmission Date: 20100115
  Serious: Yes (Other)
  Sender: FDA-Public Use
  Company Number: None

PATIENT
  Sex: Male
  Weight: 70.3075 kg

DRUGS (1)
  1. AMBIEN [Suspect]
     Indication: POOR QUALITY SLEEP
     Dosage: 5 MGM OCCASIONALLY PO
     Route: 048
     Dates: start: 20070101, end: 20090807

REACTIONS (4)
  - ANXIETY [None]
  - INSOMNIA [None]
  - NIGHTMARE [None]
  - SOMNOLENCE [None]
